FAERS Safety Report 9257718 (Version 2)
Quarter: 2013Q4

REPORT INFORMATION
  Report Type: Spontaneous
  Country: US (occurrence: US)
  Receive Date: 20130426
  Receipt Date: 20131224
  Transmission Date: 20140711
  Serious: Yes (Other)
  Sender: FDA-Public Use
  Company Number: US-ASTRAZENECA-2013SE27729

PATIENT
  Age: 63 Year
  Sex: Female
  Weight: 64 kg

DRUGS (18)
  1. NEXIUM [Suspect]
     Indication: GASTROOESOPHAGEAL REFLUX DISEASE
     Route: 048
     Dates: start: 2007, end: 2012
  2. NEXIUM [Suspect]
     Indication: EROSIVE OESOPHAGITIS
     Route: 048
     Dates: start: 2007, end: 2012
  3. NEXIUM [Suspect]
     Indication: GASTROOESOPHAGEAL REFLUX DISEASE
     Route: 048
     Dates: start: 20070731
  4. NEXIUM [Suspect]
     Indication: EROSIVE OESOPHAGITIS
     Route: 048
     Dates: start: 20070731
  5. PRILOSEC OTC [Suspect]
     Indication: DYSPEPSIA
     Dosage: AS NEEDED
     Route: 048
     Dates: start: 2007
  6. PREVACID OTC [Concomitant]
     Indication: CHEST PAIN
     Dosage: AS NEEDED
     Route: 048
     Dates: start: 2007
  7. PREVACID OTC [Concomitant]
     Indication: THROAT IRRITATION
     Dosage: AS NEEDED
     Route: 048
     Dates: start: 2007
  8. TAGAMET [Concomitant]
     Indication: DYSPEPSIA
     Dosage: AS NEEDED
     Dates: start: 2007
  9. MYLANTA OTC [Concomitant]
     Indication: DYSPEPSIA
     Dosage: AS NEEDED
     Dates: start: 2007
  10. MILK OF MAGNESIA [Concomitant]
     Indication: DYSPEPSIA
     Dosage: AS NEEDED
     Dates: start: 2007
  11. VALSARTAN [Concomitant]
     Indication: BLOOD PRESSURE ABNORMAL
  12. AMLODIPINE [Concomitant]
     Indication: BLOOD PRESSURE ABNORMAL
  13. METOPROLOL [Concomitant]
     Indication: PALPITATIONS
  14. FUROSEMIDE [Concomitant]
     Indication: FLUID IMBALANCE
  15. ZOCOR [Concomitant]
     Indication: BLOOD CHOLESTEROL ABNORMAL
  16. ASPRIN [Concomitant]
  17. MELOXICAM [Concomitant]
     Dates: start: 20070702
  18. TRAMADOL HCL [Concomitant]
     Dates: start: 20070904

REACTIONS (14)
  - Spinal fracture [Unknown]
  - Osteoporosis [Unknown]
  - Bone disorder [Unknown]
  - Multiple fractures [Unknown]
  - Back disorder [Unknown]
  - Aortic disorder [Unknown]
  - Vitamin D deficiency [Unknown]
  - Hypertension [Unknown]
  - Pain [Unknown]
  - Renal disorder [Unknown]
  - Cardiovascular disorder [Unknown]
  - Facet joint syndrome [Unknown]
  - Intervertebral disc degeneration [Unknown]
  - Lumbar spinal stenosis [Unknown]
